FAERS Safety Report 10544670 (Version 3)
Quarter: 2014Q4

REPORT INFORMATION
  Report Type: Spontaneous
  Country: US (occurrence: US)
  Receive Date: 20141027
  Receipt Date: 20141219
  Transmission Date: 20150529
  Serious: Yes (Other)
  Sender: FDA-Public Use
  Company Number: US-ASTELLAS-2014US015437

PATIENT
  Sex: Male

DRUGS (3)
  1. LEXAPRO                            /01588501/ [Concomitant]
     Indication: PRODUCT USED FOR UNKNOWN INDICATION
     Dosage: UNK UNK, UNKNOWN FREQ.
     Route: 065
  2. PROSCAR [Concomitant]
     Active Substance: FINASTERIDE
     Indication: PRODUCT USED FOR UNKNOWN INDICATION
     Dosage: UNK UNK, UNKNOWN FREQ.
     Route: 065
  3. XTANDI [Suspect]
     Active Substance: ENZALUTAMIDE
     Indication: PRODUCT USED FOR UNKNOWN INDICATION
     Route: 065
     Dates: start: 20140813

REACTIONS (9)
  - Drug dose omission [Unknown]
  - Headache [Unknown]
  - Eye disorder [Unknown]
  - Gastrointestinal motility disorder [Unknown]
  - Fatigue [Unknown]
  - Hot flush [Unknown]
  - Feeling cold [Unknown]
  - Asthenia [Unknown]
  - Mental impairment [Unknown]
